FAERS Safety Report 6996428-6 (Version None)
Quarter: 2010Q3

REPORT INFORMATION
  Report Type: 
  Country: None (occurrence: None)
  Receive Date: 20100918
  Receipt Date: 20090422
  Transmission Date: 20110219
  Serious: No
  Sender: FDA-Public Use
  Company Number: US-WYE-H08652909

PATIENT
  Sex: Female
  Weight: 71.28 kg

DRUGS (5)
  1. EFFEXOR XR [Suspect]
     Indication: DEPRESSION
     Dosage: 250-300 MG DAILY
     Route: 048
     Dates: start: 20030101, end: 20081201
  2. LEVOTHYROXINE [Concomitant]
  3. KLONOPIN [Concomitant]
  4. LAMICTAL [Concomitant]
  5. ABILIFY [Concomitant]

REACTIONS (2)
  - WEIGHT INCREASED [None]
  - WEIGHT LOSS POOR [None]
